FAERS Safety Report 23876944 (Version 1)
Quarter: 2024Q2

REPORT INFORMATION
  Report Type: Spontaneous
  Country: US (occurrence: US)
  Receive Date: 20240521
  Receipt Date: 20240521
  Transmission Date: 20240716
  Serious: Yes (Hospitalization, Other)
  Sender: FDA-Public Use
  Company Number: US-LUPIN PHARMACEUTICALS INC.-2024-04001

PATIENT
  Age: 67 Year
  Sex: Female

DRUGS (12)
  1. LEFLUNOMIDE [Suspect]
     Active Substance: LEFLUNOMIDE
     Indication: Rheumatoid arthritis
     Dosage: UNK
     Route: 065
  2. AZITHROMYCIN [Suspect]
     Active Substance: AZITHROMYCIN
     Indication: Device related infection
     Dosage: DURING 12 MONTHS OF TREATMENT DURATION, SHE INADVERTENTLY DISCONTINUED AZITHROMYCIN FOR 2 MONTHS (ME
     Route: 065
  3. AZITHROMYCIN [Suspect]
     Active Substance: AZITHROMYCIN
     Indication: Arthritis infective
  4. AZITHROMYCIN [Suspect]
     Active Substance: AZITHROMYCIN
     Indication: Mycobacterium avium complex infection
  5. METHOTREXATE [Suspect]
     Active Substance: METHOTREXATE
     Indication: Rheumatoid arthritis
     Dosage: UNK
     Route: 065
  6. PREDNISONE [Suspect]
     Active Substance: PREDNISONE
     Indication: Rheumatoid arthritis
     Dosage: UNK
     Route: 065
  7. ETHAMBUTOL [Concomitant]
     Active Substance: ETHAMBUTOL HYDROCHLORIDE
     Indication: Device related infection
     Dosage: UNK
     Route: 065
  8. ETHAMBUTOL [Concomitant]
     Active Substance: ETHAMBUTOL HYDROCHLORIDE
     Indication: Arthritis infective
  9. ETHAMBUTOL [Concomitant]
     Active Substance: ETHAMBUTOL HYDROCHLORIDE
     Indication: Mycobacterium avium complex infection
  10. RIFABUTIN [Concomitant]
     Active Substance: RIFABUTIN
     Indication: Device related infection
     Dosage: UNK
     Route: 065
  11. RIFABUTIN [Concomitant]
     Active Substance: RIFABUTIN
     Indication: Arthritis infective
  12. RIFABUTIN [Concomitant]
     Active Substance: RIFABUTIN
     Indication: Mycobacterium avium complex infection

REACTIONS (5)
  - Mycobacterium avium complex infection [Recovering/Resolving]
  - Device related infection [Recovering/Resolving]
  - Arthritis infective [Recovering/Resolving]
  - Medication error [Unknown]
  - Off label use [Unknown]
